FAERS Safety Report 5331551-3 (Version None)
Quarter: 2007Q2

REPORT INFORMATION
  Report Type: 
  Country: None (occurrence: None)
  Receive Date: 20070522
  Receipt Date: 20070514
  Transmission Date: 20071010
  Serious: Yes (Hospitalization, Other)
  Sender: FDA-Public Use
  Company Number: JP-PFIZER INC-2007027766

PATIENT
  Age: 12 Year
  Sex: Female

DRUGS (4)
  1. GENOTROPIN [Suspect]
     Indication: GROWTH HORMONE DEFICIENCY
     Dosage: FREQ:4.2MG/WEEK
     Route: 058
     Dates: start: 20030526, end: 20031101
  2. GENOTROPIN [Suspect]
     Dosage: FREQ:4.8MG/WEEK
     Route: 058
     Dates: start: 20031101, end: 20040901
  3. GENOTROPIN [Suspect]
     Dosage: FREQ:1.0MG/WEEK
     Route: 058
     Dates: start: 20040901, end: 20051110
  4. GENOTROPIN [Suspect]
     Dosage: FREQ:7.2MG/WEEK
     Route: 058
     Dates: start: 20051111, end: 20070403

REACTIONS (2)
  - INFECTIOUS MONONUCLEOSIS [None]
  - PLATELET COUNT DECREASED [None]
